FAERS Safety Report 25099414 (Version 1)
Quarter: 2025Q1

REPORT INFORMATION
  Report Type: Spontaneous
  Country: GB (occurrence: GB)
  Receive Date: 20250320
  Receipt Date: 20250320
  Transmission Date: 20250408
  Serious: Yes (Other)
  Sender: MYLAN
  Company Number: GB-MHRA-TPP19313297C12900624YC1741879263943

PATIENT
  Age: 72 Year
  Sex: Male
  Weight: 80 kg

DRUGS (17)
  1. RIVASTIGMINE [Suspect]
     Active Substance: RIVASTIGMINE
     Indication: Ill-defined disorder
  2. LATANOPROST [Concomitant]
     Active Substance: LATANOPROST
     Indication: Ill-defined disorder
     Dosage: 1 DOSAGE FORM, PM (ONE DROP ONCE DAILY, USUALLY AT NIGHT)
     Dates: start: 20241002
  3. ACETAZOLAMIDE [Concomitant]
     Active Substance: ACETAZOLAMIDE
     Indication: Ill-defined disorder
     Dosage: 0.5 DOSAGE FORM, QID (HALF A TABLET TO BE TAKEN FOUR TIMES A DAY)
     Dates: start: 20241002
  4. ATORVASTATIN [Concomitant]
     Active Substance: ATORVASTATIN
     Indication: Ill-defined disorder
     Dosage: 1 DOSAGE FORM, QD (TAKE ONE DAILY)
     Dates: start: 20241002
  5. COAL TAR\COCONUT OIL\SALICYLIC ACID [Concomitant]
     Active Substance: COAL TAR\COCONUT OIL\SALICYLIC ACID
     Indication: Ill-defined disorder
     Dosage: UNK, QD (USE DAILY)
     Dates: start: 20241002
  6. CHOLECALCIFEROL [Concomitant]
     Active Substance: CHOLECALCIFEROL
     Indication: Ill-defined disorder
     Dosage: 1 DOSAGE FORM, QD (USE AS DIRECTED BY HOSPITAL, ONCE A DAY)
     Dates: start: 20241002
  7. DORZOLAMIDE [Concomitant]
     Active Substance: DORZOLAMIDE
     Indication: Ill-defined disorder
     Dosage: 1 DOSAGE FORM, BID (ONE DROP TWICE DAILY)
     Dates: start: 20241002
  8. FOLIC ACID [Concomitant]
     Active Substance: FOLIC ACID
     Indication: Ill-defined disorder
     Dosage: 1 DOSAGE FORM, QD (TAKE ONE DAILY)
     Dates: start: 20241002
  9. FOLIC ACID\IRON\MINERALS\VITAMINS [Concomitant]
     Active Substance: FOLIC ACID\IRON\MINERALS\VITAMINS
     Indication: Ill-defined disorder
     Dosage: 1 DOSAGE FORM, QD (TAKE ONE DAILY AS ADVISED BY HOSPITAL)
     Dates: start: 20241002
  10. LANSOPRAZOLE [Concomitant]
     Active Substance: LANSOPRAZOLE
     Indication: Ill-defined disorder
     Dosage: 1 DOSAGE FORM, QD (TAKE ONE ONCE DAILY)
     Dates: start: 20241002
  11. ACETAMINOPHEN [Concomitant]
     Active Substance: ACETAMINOPHEN
     Indication: Ill-defined disorder
     Dosage: UNK, QID (TAKE 1 OR 2 TABLETS 4 TIMES PER DAY)
     Dates: start: 20241002
  12. PILOCARPINE NITRATE [Concomitant]
     Active Substance: PILOCARPINE NITRATE
     Indication: Ill-defined disorder
     Dosage: 1 DOSAGE FORM, BID (1 DROP IN EACH EYE TWICE A DAY AS DIRECTED)
     Dates: start: 20241002
  13. SERTRALINE [Concomitant]
     Active Substance: SERTRALINE HYDROCHLORIDE
     Indication: Ill-defined disorder
     Dosage: 1 DOSAGE FORM, QD (TAKE ONE TABLET ONCE A DAY)
     Dates: start: 20241002, end: 20241219
  14. THIAMINE [Concomitant]
     Active Substance: THIAMINE
     Indication: Ill-defined disorder
     Dosage: 1 DOSAGE FORM, BID (1 BD)
     Dates: start: 20241002
  15. DIGOXIN [Concomitant]
     Active Substance: DIGOXIN
     Indication: Ill-defined disorder
     Dosage: 1 DOSAGE FORM, QD (TAKE ONE TABLET ONCE DAY TO HELP CONTROL HEART)
     Dates: start: 20241030
  16. DIGOXIN [Concomitant]
     Active Substance: DIGOXIN
     Indication: Cardiac disorder
  17. WARFARIN SODIUM [Concomitant]
     Active Substance: WARFARIN SODIUM
     Indication: Ill-defined disorder

REACTIONS (1)
  - International normalised ratio increased [Recovered/Resolved]
